FAERS Safety Report 6565147-2 (Version None)
Quarter: 2010Q1

REPORT INFORMATION
  Report Type: 
  Country: None (occurrence: None)
  Receive Date: 20100201
  Receipt Date: 20100122
  Transmission Date: 20100710
  Serious: No
  Sender: FDA-Public Use
  Company Number: B0618684A

PATIENT
  Sex: Female

DRUGS (2)
  1. ZOVIRAX [Suspect]
     Indication: DRUG USE FOR UNKNOWN INDICATION
     Route: 048
  2. ETHINYL ESTRADIOL AND LEVONORGESTREL [Suspect]
     Indication: CONTRACEPTION
     Route: 065

REACTIONS (2)
  - DRUG INTERACTION [None]
  - METRORRHAGIA [None]
